FAERS Safety Report 6025219-8 (Version None)
Quarter: 2008Q4

REPORT INFORMATION
  Report Type: 
  Country: None (occurrence: None)
  Receive Date: 20081229
  Receipt Date: 20081229
  Transmission Date: 20090506
  Serious: Yes (Hospitalization, Other)
  Sender: FDA-Public Use
  Company Number: None

PATIENT
  Sex: Male
  Weight: 15 kg

DRUGS (1)
  1. IBUPROFEN TABLETS [Suspect]
     Indication: PYREXIA
     Dosage: PRN PO
     Route: 048
     Dates: start: 20081115, end: 20081125

REACTIONS (2)
  - MYCOPLASMA SEROLOGY POSITIVE [None]
  - STEVENS-JOHNSON SYNDROME [None]
